FAERS Safety Report 12525926 (Version 1)
Quarter: 2016Q3

REPORT INFORMATION
  Report Type: Spontaneous
  Country: TW (occurrence: TW)
  Receive Date: 20160705
  Receipt Date: 20160705
  Transmission Date: 20161109
  Serious: Yes (Other)
  Sender: FDA-Public Use
  Company Number: TW-ACCORD-042046

PATIENT
  Age: 58 Year
  Sex: Male

DRUGS (3)
  1. MITOMYCIN. [Suspect]
     Active Substance: MITOMYCIN
     Indication: ADENOID CYSTIC CARCINOMA
     Dosage: 2 CYCLES; ON DAY 1, EVERY THREE WEEKS FOR 10 MINS
     Route: 013
     Dates: start: 201305
  2. CISPLATIN. [Suspect]
     Active Substance: CISPLATIN
     Indication: ADENOID CYSTIC CARCINOMA
     Dosage: 2 CYCLES; ON DAY 1, EVERY THREE WEEKS FOR 1 HOUR
     Route: 013
     Dates: start: 201305
  3. BEVACIZUMAB [Suspect]
     Active Substance: BEVACIZUMAB
     Indication: ADENOID CYSTIC CARCINOMA
     Dosage: FOR 1 HOUR ON DAY 1, EVERY THREE WEEKS FOR 2 CYCLES
     Route: 014
     Dates: start: 201305

REACTIONS (2)
  - Tumour haemorrhage [Recovered/Resolved]
  - Pigmentation disorder [Unknown]
